FAERS Safety Report 21928066 (Version 1)
Quarter: 2023Q1

REPORT INFORMATION
  Report Type: Spontaneous
  Country: IT (occurrence: IT)
  Receive Date: 20230130
  Receipt Date: 20230130
  Transmission Date: 20230418
  Serious: Yes (Hospitalization)
  Sender: FDA-Public Use
  Company Number: IT-MYLANLABS-2023M1009085

PATIENT
  Age: 27 Year
  Sex: Female

DRUGS (7)
  1. NIFEDIPINE [Suspect]
     Active Substance: NIFEDIPINE
     Indication: Hypertension
     Dosage: 20 MILLIGRAM
     Route: 065
  2. URSODIOL [Suspect]
     Active Substance: URSODIOL
     Indication: Total bile acids increased
     Dosage: 450 MILLIGRAM, BID
     Route: 065
  3. FOLIC ACID [Suspect]
     Active Substance: FOLIC ACID
     Indication: Supplementation therapy
     Dosage: UNK
     Route: 065
  4. IRON [Suspect]
     Active Substance: IRON
     Indication: Supplementation therapy
     Dosage: UNK
     Route: 065
  5. VITAMIN D [Suspect]
     Active Substance: VITAMIN D NOS
     Indication: Supplementation therapy
     Dosage: UNK
     Route: 065
  6. LABETALOL [Suspect]
     Active Substance: LABETALOL\LABETALOL HYDROCHLORIDE
     Indication: Hypertension
     Dosage: 100 MILLIGRAM, QD
     Route: 065
  7. METHYLDOPA [Suspect]
     Active Substance: METHYLDOPA
     Indication: Hypertension
     Dosage: 500 MILLIGRAM, TID
     Route: 065

REACTIONS (3)
  - Therapy non-responder [Unknown]
  - Maternal exposure during pregnancy [Recovered/Resolved]
  - Normal newborn [Recovered/Resolved]
